FAERS Safety Report 4608192-6 (Version None)
Quarter: 2005Q2

REPORT INFORMATION
  Report Type: 
  Country: None (occurrence: None)
  Receive Date: 20050303
  Receipt Date: 20041104
  Transmission Date: 20051028
  Serious: No
  Sender: FDA-Public Use
  Company Number: 702328

PATIENT
  Sex: Male

DRUGS (7)
  1. AMEVIVE [Suspect]
     Indication: PSORIASIS
     Dosage: 15 MG; QW; IM
     Route: 030
     Dates: start: 20040706, end: 20040910
  2. HYPERTENSION MEDICATION (NOS) [Concomitant]
  3. OLUX [Concomitant]
  4. ALPRAZOLAM [Concomitant]
  5. AMBIEN [Concomitant]
  6. NEXIUM [Concomitant]
  7. IBUPROFEN [Concomitant]

REACTIONS (1)
  - CD4 LYMPHOCYTES DECREASED [None]
